FAERS Safety Report 9984275 (Version 1)
Quarter: 2014Q1

REPORT INFORMATION
  Report Type: Report from Study
  Country: US (occurrence: US)
  Receive Date: 20140307
  Receipt Date: 20140307
  Transmission Date: 20141002
  Serious: No
  Sender: FDA-Public Use
  Company Number: US-ABBVIE-13P-163-1182673-00

PATIENT
  Age: 71 Year
  Sex: Male

DRUGS (9)
  1. HUMIRA [Suspect]
     Indication: COLITIS ULCERATIVE
     Dates: start: 20131122, end: 20131122
  2. HUMIRA [Suspect]
     Dates: start: 20131206, end: 20131206
  3. HUMIRA [Suspect]
  4. MYRBETRIQ [Concomitant]
     Indication: URINARY INCONTINENCE
  5. PREDNISONE [Concomitant]
     Indication: COLITIS ULCERATIVE
  6. RAMIPRIL [Concomitant]
     Indication: HYPERTENSION
  7. NITROFURANTOIN MONO/MAC [Concomitant]
     Indication: BLADDER DISORDER
  8. MULTIVITAMIN [Concomitant]
     Indication: PRODUCT USED FOR UNKNOWN INDICATION
  9. MARIJUANA [Concomitant]
     Indication: DECREASED APPETITE

REACTIONS (2)
  - Drug ineffective [Unknown]
  - Diarrhoea [Not Recovered/Not Resolved]
